FAERS Safety Report 23653327 (Version 2)
Quarter: 2025Q1

REPORT INFORMATION
  Report Type: Report from Study
  Country: US (occurrence: US)
  Receive Date: 20240320
  Receipt Date: 20250319
  Transmission Date: 20250409
  Serious: Yes (Hospitalization)
  Sender: ABBVIE
  Company Number: US-ABBVIE-5684552

PATIENT
  Sex: Female

DRUGS (2)
  1. SKYRIZI [Suspect]
     Active Substance: RISANKIZUMAB-RZAA
     Indication: Psoriasis
     Route: 058
     Dates: start: 20231214
  2. SKYRIZI [Suspect]
     Active Substance: RISANKIZUMAB-RZAA
     Route: 058

REACTIONS (8)
  - Respiratory failure [Recovered/Resolved]
  - Asthma [Recovered/Resolved]
  - Multiple allergies [Recovered/Resolved]
  - Joint dislocation [Unknown]
  - Mucormycosis [Unknown]
  - Pain [Not Recovered/Not Resolved]
  - Norovirus infection [Unknown]
  - Respiratory disorder [Unknown]
